FAERS Safety Report 9870874 (Version 1)
Quarter: 2014Q1

REPORT INFORMATION
  Report Type: Spontaneous
  Country: DE (occurrence: None)
  Receive Date: 20140203
  Receipt Date: 20140203
  Transmission Date: 20141002
  Serious: Yes (Other)
  Sender: FDA-Public Use
  Company Number: AXC-2014-000067

PATIENT
  Age: 51 Year
  Sex: Female

DRUGS (2)
  1. NITROGLYCERIN [Suspect]
     Indication: ANAL FISSURE
     Dosage: 1.5MG, QD, RECTAL
     Dates: start: 20131208, end: 20131208
  2. SYMBICORT [Concomitant]

REACTIONS (3)
  - Syncope [None]
  - Head injury [None]
  - Fall [None]
